FAERS Safety Report 9312753 (Version 1)
Quarter: 2013Q2

REPORT INFORMATION
  Report Type: Spontaneous
  Country: IN (occurrence: IN)
  Receive Date: 20130528
  Receipt Date: 20130528
  Transmission Date: 20140414
  Serious: Yes (Hospitalization)
  Sender: FDA-Public Use
  Company Number: IN-MYLANLABS-2013S1010847

PATIENT
  Age: 2 Year
  Sex: Male

DRUGS (2)
  1. MIDAZOLAM [Suspect]
     Indication: SEDATION
     Dosage: 1MG (PARENTERAL PREPARATION OF MIDAZOLAM-0.1MG/KG)
     Route: 048
  2. AZITHROMYCIN [Interacting]
     Indication: PYREXIA
     Route: 048

REACTIONS (2)
  - Sedation [Recovered/Resolved]
  - Drug interaction [Recovered/Resolved]
